FAERS Safety Report 20065180 (Version 3)
Quarter: 2022Q1

REPORT INFORMATION
  Report Type: Report from Study
  Country: US (occurrence: US)
  Receive Date: 20211113
  Receipt Date: 20220112
  Transmission Date: 20220423
  Serious: Yes (Hospitalization)
  Sender: FDA-Public Use
  Company Number: US-BIOGEN-2021BI01066758

PATIENT
  Age: 57 Year
  Sex: Male

DRUGS (1)
  1. TYSABRI [Suspect]
     Active Substance: NATALIZUMAB
     Indication: Multiple sclerosis
     Dosage: INFUSED OVER ONE HOUR
     Route: 065
     Dates: start: 20201110

REACTIONS (8)
  - Dehydration [Unknown]
  - Syncope [Unknown]
  - Memory impairment [Unknown]
  - Asthenia [Unknown]
  - Confusional state [Unknown]
  - Balance disorder [Unknown]
  - Choking [Unknown]
  - Rash [Unknown]

NARRATIVE: CASE EVENT DATE: 20211101
